FAERS Safety Report 10153310 (Version 1)
Quarter: 2014Q2

REPORT INFORMATION
  Report Type: Spontaneous
  Country: US (occurrence: US)
  Receive Date: 20140505
  Receipt Date: 20140505
  Transmission Date: 20141212
  Serious: No
  Sender: FDA-Public Use
  Company Number: US-ASTRAZENECA-2013SE90808

PATIENT
  Age: 30 Year
  Sex: Male
  Weight: 132.4 kg

DRUGS (8)
  1. PRILOSEC [Suspect]
     Indication: GASTROOESOPHAGEAL REFLUX DISEASE
     Route: 048
     Dates: start: 2011
  2. SEROQUEL [Suspect]
     Indication: BIPOLAR DISORDER
     Route: 048
     Dates: start: 2009, end: 2011
  3. SEROQUEL [Suspect]
     Indication: BIPOLAR DISORDER
     Route: 048
     Dates: start: 201312
  4. ABILIFY [Concomitant]
     Indication: PSYCHOTIC DISORDER
     Route: 048
     Dates: start: 2003
  5. WELLBUTRIN SR [Concomitant]
     Indication: DEPRESSION
     Route: 048
     Dates: start: 2003
  6. LOMICTIL [Concomitant]
     Indication: AFFECTIVE DISORDER
     Route: 048
     Dates: start: 2009
  7. ZYPREXA [Concomitant]
     Indication: MANIA
     Route: 048
     Dates: start: 2002
  8. CLONIPIN [Concomitant]
     Indication: SLEEP DISORDER
     Route: 048
     Dates: start: 2010

REACTIONS (5)
  - Bronchitis [Not Recovered/Not Resolved]
  - Fatigue [Recovered/Resolved]
  - Increased appetite [Recovered/Resolved]
  - Gastrooesophageal reflux disease [Unknown]
  - Mania [Unknown]
